FAERS Safety Report 15706010 (Version 1)
Quarter: 2018Q4

REPORT INFORMATION
  Report Type: Spontaneous
  Country: IT (occurrence: IT)
  Receive Date: 20181210
  Receipt Date: 20181210
  Transmission Date: 20190205
  Serious: Yes (Hospitalization, Other)
  Sender: FDA-Public Use
  Company Number: IT-ASTRAZENECA-2018SF59902

PATIENT
  Age: 19397 Day
  Sex: Female
  Weight: 79 kg

DRUGS (15)
  1. OLAPARIB. [Suspect]
     Active Substance: OLAPARIB
     Route: 048
     Dates: start: 20181124
  2. OLAPARIB. [Suspect]
     Active Substance: OLAPARIB
     Route: 048
     Dates: start: 20170725, end: 20170830
  3. CARBOPLATINUM [Concomitant]
     Active Substance: CARBOPLATIN
     Dates: start: 20150506, end: 20150920
  4. OLAPARIB. [Suspect]
     Active Substance: OLAPARIB
     Route: 048
     Dates: start: 20170517, end: 20170531
  5. CARBOPLATINUM [Concomitant]
     Active Substance: CARBOPLATIN
     Dates: start: 20160825, end: 20170413
  6. TAXOL [Concomitant]
     Active Substance: PACLITAXEL
     Dates: start: 20150506, end: 20150920
  7. OLAPARIB. [Suspect]
     Active Substance: OLAPARIB
     Route: 048
     Dates: start: 20180930
  8. BEVACIZUMAB. [Concomitant]
     Active Substance: BEVACIZUMAB
     Dates: end: 20160620
  9. LUVION [Concomitant]
  10. AMLODIPINE [Concomitant]
     Active Substance: AMLODIPINE BESYLATE
     Indication: HYPERTENSION
  11. OLAPARIB. [Suspect]
     Active Substance: OLAPARIB
     Route: 048
     Dates: start: 20170620
  12. OLAPARIB. [Suspect]
     Active Substance: OLAPARIB
     Route: 048
     Dates: start: 20180502
  13. OLAPARIB. [Suspect]
     Active Substance: OLAPARIB
     Route: 048
     Dates: start: 20180110, end: 20180310
  14. BEVACIZUMAB. [Concomitant]
     Active Substance: BEVACIZUMAB
     Dates: start: 20150506, end: 20150920
  15. LOBIVON [Concomitant]
     Active Substance: NEBIVOLOL HYDROCHLORIDE

REACTIONS (6)
  - Thrombocytopenia [Unknown]
  - Asthenia [Unknown]
  - Post procedural haematoma [Unknown]
  - Hydronephrosis [Recovered/Resolved]
  - Dyspnoea exertional [Unknown]
  - Abdominal hernia [Unknown]

NARRATIVE: CASE EVENT DATE: 20170531
